FAERS Safety Report 7628967-9 (Version None)
Quarter: 2011Q3

REPORT INFORMATION
  Report Type: 
  Country: None (occurrence: None)
  Receive Date: 20110722
  Receipt Date: 20110712
  Transmission Date: 20111222
  Serious: Yes (Other)
  Sender: FDA-Public Use
  Company Number: US-AMGEN-USASP2011033431

PATIENT
  Age: 68 Year
  Sex: Female

DRUGS (12)
  1. FIBER [Concomitant]
     Dosage: UNK UNK, QD
     Route: 048
  2. FOLIC ACID [Concomitant]
     Dosage: 1 MG, QD
     Route: 048
  3. CALCIUM CARBONATE [Concomitant]
     Dosage: 600 MG, QD
     Route: 048
  4. FISH OIL [Concomitant]
     Dosage: UNK UNK, QD
     Route: 048
  5. ENBREL [Suspect]
     Indication: RHEUMATOID ARTHRITIS
     Dosage: 50 MG, QWK
     Route: 058
     Dates: start: 19990101
  6. TOPROL-XL [Concomitant]
     Dosage: 50 MG, QD
     Route: 048
  7. METHOTREXATE [Concomitant]
     Dosage: UNK
  8. ACETAMINOPHEN [Concomitant]
     Dosage: 500 MG, TID
  9. LEVOTHYROXINE SODIUM [Concomitant]
     Dosage: 150 A?G, QD
     Route: 048
  10. VYTORIN [Concomitant]
     Dosage: UNK UNK, QD
     Route: 048
  11. LOSARTAN + HIDROCLOROTIAZIDA [Concomitant]
     Dosage: UNK UNK, QD
     Route: 048
  12. MULTI-VITAMINS [Concomitant]
     Dosage: UNK UNK, QD
     Route: 048

REACTIONS (9)
  - JOINT SURGERY [None]
  - GASTROOESOPHAGEAL REFLUX DISEASE [None]
  - HYPERLIPIDAEMIA [None]
  - DRY MOUTH [None]
  - APPENDICECTOMY [None]
  - HYPOTHYROIDISM [None]
  - DRY EYE [None]
  - BREAST CANCER STAGE I [None]
  - SJOGREN'S SYNDROME [None]
